FAERS Safety Report 20089279 (Version 1)
Quarter: 2021Q4

REPORT INFORMATION
  Report Type: Spontaneous
  Country: US (occurrence: None)
  Receive Date: 20211119
  Receipt Date: 20211119
  Transmission Date: 20220303
  Serious: Yes (Hospitalization)
  Sender: FDA-Public Use
  Company Number: US-ROCHE-2955153

PATIENT
  Age: 63 Year
  Sex: Female

DRUGS (11)
  1. ACTEMRA [Suspect]
     Active Substance: TOCILIZUMAB
     Indication: Rheumatoid arthritis
     Route: 058
  2. ACTEMRA [Suspect]
     Active Substance: TOCILIZUMAB
  3. ACTEMRA [Suspect]
     Active Substance: TOCILIZUMAB
  4. AMLODIPINE [Concomitant]
     Active Substance: AMLODIPINE BESYLATE
  5. ASPIRIN [Concomitant]
     Active Substance: ASPIRIN
  6. ATORVASTATIN [Concomitant]
     Active Substance: ATORVASTATIN
  7. FERROUS SULFATE [Concomitant]
     Active Substance: FERROUS SULFATE
  8. LEFLUNOMIDE [Concomitant]
     Active Substance: LEFLUNOMIDE
  9. LOSARTAN POTASSIUM [Concomitant]
     Active Substance: LOSARTAN POTASSIUM
  10. METOPROLOL [Concomitant]
     Active Substance: METOPROLOL
  11. PACERONE [Concomitant]
     Active Substance: AMIODARONE HYDROCHLORIDE

REACTIONS (7)
  - Dyspnoea exertional [Unknown]
  - Pain [Unknown]
  - Joint swelling [Unknown]
  - Joint range of motion decreased [Unknown]
  - Atrial fibrillation [Recovering/Resolving]
  - Face injury [Unknown]
  - Fall [Unknown]

NARRATIVE: CASE EVENT DATE: 20211106
